FAERS Safety Report 8891264 (Version 2)
Quarter: 2012Q4

REPORT INFORMATION
  Report Type: 
  Country: US (occurrence: US)
  Receive Date: 20121107
  Receipt Date: 20121207
  Transmission Date: 20130627
  Serious: No
  Sender: FDA-Public Use
  Company Number: US-VERTEX PHARMACEUTICAL INC.-2012-024126

PATIENT
  Age: 59 Year
  Sex: Female
  Weight: 73 kg

DRUGS (10)
  1. VX-950 (TELAPREVIR) [Suspect]
     Indication: HEPATITIS C
     Dosage: 750 mg, tid
     Route: 048
  2. PEGASYS [Concomitant]
     Indication: HEPATITIS C
  3. RIBAVIRIN [Concomitant]
     Indication: HEPATITIS C
     Dosage: 200 mg, UNK
  4. SYNTHROID [Concomitant]
     Dosage: 100 ?g, UNK
  5. CITALOPRAM [Concomitant]
     Dosage: 10 mg, UNK
  6. GEODON                             /01487002/ [Concomitant]
     Dosage: 20 mg, UNK
  7. LORAZEPAM [Concomitant]
     Dosage: 1 mg, UNK
  8. CALCIUM [Concomitant]
  9. OMEGA 3                            /01334101/ [Concomitant]
     Dosage: 1000 mg, UNK
  10. VITAMIN B CO ALMUS [Concomitant]

REACTIONS (9)
  - Arthralgia [Unknown]
  - Groin pain [Unknown]
  - Pain in extremity [Unknown]
  - Gait disturbance [Unknown]
  - Injection site swelling [Unknown]
  - Injection site erythema [Unknown]
  - Injection site pruritus [Unknown]
  - Lip swelling [Unknown]
  - Swelling face [Unknown]
